FAERS Safety Report 4383363-5 (Version None)
Quarter: 2004Q2

REPORT INFORMATION
  Report Type: 
  Country: None (occurrence: None)
  Receive Date: 20040618
  Receipt Date: 20040609
  Transmission Date: 20050107
  Serious: Yes (Life-Threatening)
  Sender: FDA-Public Use
  Company Number: 200410307BYL

PATIENT
  Age: 76 Year
  Sex: Female

DRUGS (8)
  1. ADALAT CC [Suspect]
     Dosage: 60 MG, BID, ORAL
     Route: 048
  2. LIPITOR [Suspect]
     Dosage: 20 MG BID, ORAL
     Route: 048
  3. BEZATOL SR (BEZAFIBRATE) [Suspect]
     Dosage: 200 MG, BID, ORAL
     Route: 048
  4. TENORMIN [Concomitant]
  5. DIGITOXIN TAB [Concomitant]
  6. RYTHMODAN [Concomitant]
  7. ISOSORBIDE MONONITRATE [Concomitant]
  8. BAYASPIRIN [Concomitant]

REACTIONS (4)
  - BRADYARRHYTHMIA [None]
  - HEPATIC FUNCTION ABNORMAL [None]
  - HYPERKALAEMIA [None]
  - RENAL IMPAIRMENT [None]
